FAERS Safety Report 10418886 (Version 1)
Quarter: 2014Q3

REPORT INFORMATION
  Report Type: Spontaneous
  Country: IT (occurrence: None)
  Receive Date: 20140827
  Receipt Date: 20140827
  Transmission Date: 20150326
  Serious: Yes (Life-Threatening, Hospitalization, Other)
  Sender: FDA-Public Use
  Company Number: AUR-APL-2014-09095

PATIENT
  Age: 59 Year
  Sex: Male
  Weight: 71 kg

DRUGS (10)
  1. RAMIPRIL 2.5MG (RAMIPRIL) UNKNOWN, 2.5MG [Suspect]
     Active Substance: RAMIPRIL
     Indication: CARDIAC FAILURE
     Route: 048
  2. WARFARIN (WARFARIN) [Concomitant]
     Active Substance: WARFARIN
  3. CANRENONE (CANRENONE) [Concomitant]
  4. ASPIRIN. [Concomitant]
     Active Substance: ASPIRIN
  5. IVABRADINE [Suspect]
     Active Substance: IVABRADINE
     Indication: ANGINA UNSTABLE
     Dates: start: 20140708, end: 20140811
  6. BISOPROLOL 1.25 MG (BISOPROLOL) UNKNOWN, 1.25 MG [Suspect]
     Active Substance: BISOPROLOL
     Indication: MYOCARDIAL ISCHAEMIA
     Route: 048
     Dates: start: 20140708, end: 20140811
  7. METOLAZONE (METOLAZONE) (METOLAZONE) [Suspect]
     Active Substance: METOLAZONE
     Indication: CARDIAC FAILURE
     Route: 048
     Dates: start: 20140708, end: 20140811
  8. FUROSEMIDE. [Concomitant]
     Active Substance: FUROSEMIDE
  9. LORATADINE (LORATADINE) (LORATADINE) [Suspect]
     Active Substance: LORATADINE
     Indication: PRODUCT USED FOR UNKNOWN INDICATION
     Dates: start: 20140708, end: 20140811
  10. ALLOPURINOL (ALLOPURINOL) [Suspect]
     Active Substance: ALLOPURINOL
     Indication: HYPERURICAEMIA
     Route: 048
     Dates: start: 20140708, end: 20140811

REACTIONS (4)
  - Multi-organ failure [None]
  - Drug reaction with eosinophilia and systemic symptoms [None]
  - Renal failure acute [None]
  - Shock [None]

NARRATIVE: CASE EVENT DATE: 20140721
